FAERS Safety Report 9294283 (Version 1)
Quarter: 2013Q2

REPORT INFORMATION
  Report Type: Spontaneous
  Country: US (occurrence: US)
  Receive Date: 20130516
  Receipt Date: 20130516
  Transmission Date: 20140414
  Serious: No
  Sender: FDA-Public Use
  Company Number: US-BANPHARM-20130997

PATIENT
  Age: 59 Year
  Sex: Female
  Weight: 68.04 kg

DRUGS (2)
  1. IBUPROFEN CAPSULES 200 MG [Suspect]
     Indication: UVEITIS
     Dosage: 2 DF, Q8H,
     Route: 048
     Dates: start: 20130305, end: 20130307
  2. OCUVITE [Concomitant]
     Dosage: 2 DF QD

REACTIONS (1)
  - Urticaria [Not Recovered/Not Resolved]
